FAERS Safety Report 4787082-2 (Version None)
Quarter: 2005Q3

REPORT INFORMATION
  Report Type: 
  Country: None (occurrence: None)
  Receive Date: 20050930
  Receipt Date: 20050912
  Transmission Date: 20060218
  Serious: Yes (Other)
  Sender: FDA-Public Use
  Company Number: 6017393

PATIENT
  Age: 24 Year
  Sex: Male

DRUGS (1)
  1. LURANTAL (CAPSULE) (ISOTRETINOIN) [Suspect]
     Indication: ACNE
     Dosage: 1D, ORAL
     Route: 048
     Dates: start: 20041101, end: 20050701

REACTIONS (1)
  - DEPRESSION [None]
